FAERS Safety Report 8031692-6 (Version None)
Quarter: 2012Q1

REPORT INFORMATION
  Report Type: 
  Country: None (occurrence: None)
  Receive Date: 20120109
  Receipt Date: 20120103
  Transmission Date: 20120608
  Serious: No
  Sender: FDA-Public Use
  Company Number: US-PFIZER INC-2012002028

PATIENT
  Sex: Female

DRUGS (19)
  1. METOPROLOL TARTRATE [Suspect]
     Dosage: UNK
  2. FIORINAL [Suspect]
     Dosage: UNK
  3. NITROGLYCERIN [Concomitant]
     Dosage: 0.3 MG, EVERY 5 MINUTES
     Route: 060
  4. ALDACTONE [Concomitant]
     Dosage: 25 MG, DAILY
     Route: 048
  5. PREMARIN [Concomitant]
     Dosage: 0.625 MG, DAILY
     Route: 048
  6. VITAMIN D [Concomitant]
     Dosage: 2000 IU, DAILY
  7. VALIUM [Concomitant]
     Indication: ANXIETY
     Dosage: 2 MG, TWICE DAILY AS NEEDED
     Route: 048
  8. COZAAR [Concomitant]
     Dosage: 50 MG, DAILY
     Route: 048
  9. MULTI-VITAMINS [Concomitant]
     Dosage: 1 DF, DAILY
     Route: 048
  10. MORPHINE SULFATE [Suspect]
     Dosage: UNK
  11. PACERONE [Concomitant]
     Dosage: 200 MG, DAILY
     Route: 048
  12. FENTANYL [Suspect]
     Dosage: UNK
  13. HYDROCHLOROTHIAZIDE [Concomitant]
     Dosage: 25 MG, DAILY
     Route: 048
  14. GLEEVEC [Concomitant]
     Dosage: 400 MG, 1X/DAY
     Route: 048
  15. COD-LIVER OIL [Concomitant]
     Dosage: 1 DF, DAILY
     Route: 048
  16. POTASSIUM CHLORIDE [Concomitant]
     Dosage: 10 MEQ, DAILY
     Route: 048
  17. CODEINE [Suspect]
     Dosage: UNK
  18. VITAMIN C [Concomitant]
     Dosage: 500 MG, DAILY
  19. LASIX [Concomitant]
     Dosage: 20 MG, 2X/DAY
     Route: 048

REACTIONS (2)
  - NAUSEA [None]
  - VOMITING [None]
